FAERS Safety Report 6865071-1 (Version None)
Quarter: 2010Q3

REPORT INFORMATION
  Report Type: 
  Country: None (occurrence: None)
  Receive Date: 20100721
  Receipt Date: 20080414
  Transmission Date: 20110219
  Serious: No
  Sender: FDA-Public Use
  Company Number: US-PFIZER INC-2008033622

PATIENT
  Sex: Male

DRUGS (37)
  1. CHANTIX [Suspect]
     Indication: SMOKING CESSATION THERAPY
     Route: 048
     Dates: start: 20080201
  2. ZINC [Concomitant]
  3. MULTIPLE VITAMINS [Concomitant]
  4. ESTER-C [Concomitant]
  5. VITAMIN E [Concomitant]
  6. SELENIUM [Concomitant]
  7. UBIDECARENONE [Concomitant]
  8. ACIDOPHILUS [Concomitant]
  9. CHROMIUM PICOLINATE [Concomitant]
  10. VITACAL [Concomitant]
  11. CITRUS PARADISI FRUIT JUICE [Concomitant]
  12. ALPHA LIPOIC ACID [Concomitant]
  13. ACETYLSALICYLIC ACID [Concomitant]
  14. FORADIL [Concomitant]
  15. SPIRIVA [Concomitant]
  16. ALPRAZOLAM [Concomitant]
  17. ALPRAZOLAM [Concomitant]
  18. LIPITOR [Concomitant]
  19. LIPITOR [Concomitant]
  20. ZETIA [Concomitant]
  21. ZETIA [Concomitant]
  22. MONTELUKAST SODIUM [Concomitant]
  23. MONTELUKAST SODIUM [Concomitant]
  24. CLARINEX [Concomitant]
  25. ALL OTHER THERAPEUTIC PRODUCTS [Concomitant]
  26. SERTRALINE HCL [Concomitant]
  27. AVODART [Concomitant]
  28. OMEPRAZOLE [Concomitant]
  29. FLOVENT [Concomitant]
  30. FLUTICASONE PROPIONATE [Concomitant]
  31. SODIUM CHLORIDE [Concomitant]
  32. ALBUTEROL [Concomitant]
     Route: 055
  33. IPRATROPIUM [Concomitant]
     Route: 055
  34. PROCATEROL HCL [Concomitant]
     Route: 055
  35. TUSSIN DM [Concomitant]
  36. ALL OTHER THERAPEUTIC PRODUCTS [Concomitant]
  37. HYDROCHLOROTHIAZIDE [Concomitant]

REACTIONS (2)
  - NIGHTMARE [None]
  - SLEEP DISORDER [None]
